FAERS Safety Report 7331601-9 (Version None)
Quarter: 2011Q1

REPORT INFORMATION
  Report Type: 
  Country: None (occurrence: None)
  Receive Date: 20110304
  Receipt Date: 20110207
  Transmission Date: 20110831
  Serious: No
  Sender: FDA-Public Use
  Company Number: A0912291A

PATIENT
  Age: 14 Year
  Sex: Female

DRUGS (2)
  1. LAMICTAL [Suspect]
     Dates: start: 20110117, end: 20110120
  2. IBUPROFEN [Concomitant]

REACTIONS (2)
  - RASH [None]
  - INFECTIOUS MONONUCLEOSIS [None]
